FAERS Safety Report 7423766-5 (Version None)
Quarter: 2011Q2

REPORT INFORMATION
  Report Type: 
  Country: None (occurrence: None)
  Receive Date: 20110419
  Receipt Date: 20110321
  Transmission Date: 20111010
  Serious: Yes (Hospitalization, Other)
  Sender: FDA-Public Use
  Company Number: US-AMGEN-USASP2011019146

PATIENT
  Sex: Male

DRUGS (8)
  1. SYNTHROID [Concomitant]
  2. POTASSIUM [Concomitant]
  3. LASIX [Concomitant]
     Dosage: 80 MG, UNK
     Route: 048
  4. TOPROL-XL [Concomitant]
  5. PROCRIT [Suspect]
     Indication: RENAL FAILURE
     Dosage: UNK
     Dates: end: 20020301
  6. DIGOXIN [Concomitant]
  7. PROTONIX [Concomitant]
  8. LISINOPRIL [Concomitant]

REACTIONS (22)
  - SPINAL OSTEOARTHRITIS [None]
  - OESOPHAGEAL VARICES HAEMORRHAGE [None]
  - CARDIOMEGALY [None]
  - CORONARY ARTERIAL STENT INSERTION [None]
  - PULMONARY FIBROSIS [None]
  - THROMBOCYTOPENIA [None]
  - WEIGHT INCREASED [None]
  - SPLENOMEGALY [None]
  - HYPERSPLENISM [None]
  - ANAEMIA [None]
  - IRON DEFICIENCY [None]
  - OEDEMA PERIPHERAL [None]
  - BLADDER CATHETERISATION [None]
  - HEPATIC CIRRHOSIS [None]
  - LIGHT CHAIN ANALYSIS INCREASED [None]
  - BLADDER DISORDER [None]
  - BLOOD ALKALINE PHOSPHATASE INCREASED [None]
  - OESOPHAGEAL ULCER HAEMORRHAGE [None]
  - MALAISE [None]
  - ABDOMINAL PAIN LOWER [None]
  - PNEUMATURIA [None]
  - CYSTOSTOMY [None]
